FAERS Safety Report 9037584 (Version 1)
Quarter: 2012Q4

REPORT INFORMATION
  Report Type: Spontaneous
  Country: US (occurrence: None)
  Receive Date: 20120904
  Receipt Date: 20120904
  Transmission Date: 20130627
  Serious: Yes (Other)
  Sender: FDA-Public Use
  Company Number: ADR-2012-00829

PATIENT
  Sex: Female

DRUGS (2)
  1. LIORESAL INTRATHECAL (BACLOFEN INJECTION) [Suspect]
     Indication: SPASTICITY
  2. LIORESAL INTRATHECAL (BACLOFEN INJECTION) [Suspect]
     Indication: CEREBRAL PALSY

REACTIONS (12)
  - Dizziness [None]
  - Muscle tightness [None]
  - Feeling abnormal [None]
  - Extrasystoles [None]
  - Pollakiuria [None]
  - Thyroid disorder [None]
  - Middle insomnia [None]
  - Drug withdrawal syndrome [None]
  - Dyspnoea [None]
  - Feeling abnormal [None]
  - Rash [None]
  - Nervousness [None]
